FAERS Safety Report 17735331 (Version 7)
Quarter: 2020Q3

REPORT INFORMATION
  Report Type: Report from Study
  Country: CA (occurrence: CA)
  Receive Date: 20200501
  Receipt Date: 20200916
  Transmission Date: 20201102
  Serious: Yes (Hospitalization)
  Sender: FDA-Public Use
  Company Number: PHHY2019CA124695

PATIENT
  Age: 58 Year
  Sex: Male

DRUGS (3)
  1. SANDOSTATIN LAR DEPOT [Suspect]
     Active Substance: OCTREOTIDE ACETATE
     Indication: CARCINOID TUMOUR
     Dosage: 30 MG, QMO
     Route: 030
     Dates: start: 20190522
  2. SANDOSTATIN LAR DEPOT [Suspect]
     Active Substance: OCTREOTIDE ACETATE
  3. SANDOSTATIN LAR DEPOT [Suspect]
     Active Substance: OCTREOTIDE ACETATE

REACTIONS (8)
  - Blood pressure increased [Unknown]
  - Injection site pain [Unknown]
  - Hepatic lesion [Unknown]
  - Blood pressure diastolic increased [Unknown]
  - Post procedural infection [Recovered/Resolved]
  - Oral discomfort [Unknown]
  - Nasopharyngitis [Unknown]
  - Glossodynia [Unknown]

NARRATIVE: CASE EVENT DATE: 2019
